FAERS Safety Report 5271814-3 (Version None)
Quarter: 2007Q1

REPORT INFORMATION
  Report Type: 
  Country: None (occurrence: None)
  Receive Date: 20070316
  Receipt Date: 20070301
  Transmission Date: 20070707
  Serious: Yes (Other)
  Sender: FDA-Public Use
  Company Number: 230001M07HUN

PATIENT
  Sex: Female

DRUGS (1)
  1. REBIF [Suspect]

REACTIONS (1)
  - POLYCYSTIC LIVER DISEASE [None]
